FAERS Safety Report 10608331 (Version 1)
Quarter: 2014Q4

REPORT INFORMATION
  Report Type: Spontaneous
  Country: DE (occurrence: DE)
  Receive Date: 20141125
  Receipt Date: 20141125
  Transmission Date: 20150529
  Serious: Yes (Other)
  Sender: FDA-Public Use
  Company Number: DE-TEVA-522739GER

PATIENT
  Age: 74 Year
  Sex: Male

DRUGS (5)
  1. METOPROLOL [Suspect]
     Active Substance: METOPROLOL
     Route: 048
  2. RISPERDAL [Interacting]
     Active Substance: RISPERIDONE
     Route: 048
     Dates: start: 20140409, end: 20140409
  3. RISPERDAL [Interacting]
     Active Substance: RISPERIDONE
     Route: 048
     Dates: start: 20140410, end: 20140410
  4. RAMIPRIL. [Concomitant]
     Active Substance: RAMIPRIL
     Route: 048
     Dates: end: 20140422
  5. ALLOPURINOL. [Concomitant]
     Active Substance: ALLOPURINOL
     Route: 048
     Dates: end: 20140416

REACTIONS (8)
  - Dysphagia [Recovered/Resolved]
  - Hypotonia [Recovered/Resolved]
  - Masked facies [Recovered/Resolved]
  - Oromandibular dystonia [Recovered/Resolved]
  - Drug interaction [Recovered/Resolved]
  - Salivary hypersecretion [Recovered/Resolved]
  - Parkinsonism [Recovered/Resolved]
  - Speech disorder [Recovered/Resolved]

NARRATIVE: CASE EVENT DATE: 20140411
